FAERS Safety Report 6877212-0 (Version None)
Quarter: 2010Q3

REPORT INFORMATION
  Report Type: 
  Country: None (occurrence: None)
  Receive Date: 20100727
  Receipt Date: 20091215
  Transmission Date: 20110219
  Serious: No
  Sender: FDA-Public Use
  Company Number: US-ABBOTT-05P-163-0317320-00

PATIENT
  Sex: Male
  Weight: 65.83 kg

DRUGS (6)
  1. SYNTHROID [Suspect]
     Indication: HYPOTHYROIDISM
     Route: 048
     Dates: start: 19900701, end: 20070101
  2. GLAUCOMA EYE DROPS [Concomitant]
     Indication: GLAUCOMA
     Route: 047
  3. NPH INSULIN [Concomitant]
     Indication: DIABETES MELLITUS
     Dosage: SLIDING SCALE
  4. HUMALOG [Concomitant]
     Indication: DIABETES MELLITUS
     Dosage: SLIDING SCALE
  5. MULTI-VITAMINS [Concomitant]
     Indication: VITAMIN SUPPLEMENTATION
     Route: 048
  6. FOSAMAX [Concomitant]
     Indication: PRODUCT USED FOR UNKNOWN INDICATION
     Dates: start: 20030501, end: 20071201

REACTIONS (9)
  - BACK PAIN [None]
  - BLOOD THYROID STIMULATING HORMONE INCREASED [None]
  - BODY HEIGHT DECREASED [None]
  - COMPRESSION FRACTURE [None]
  - FALL [None]
  - LUMBAR VERTEBRAL FRACTURE [None]
  - OSTEOPENIA [None]
  - OSTEOPOROSIS [None]
  - SPINAL FRACTURE [None]
